FAERS Safety Report 6801146-0 (Version None)
Quarter: 2010Q2

REPORT INFORMATION
  Report Type: 
  Country: None (occurrence: None)
  Receive Date: 20100629
  Receipt Date: 20100617
  Transmission Date: 20101027
  Serious: Yes (Disabling, Other)
  Sender: FDA-Public Use
  Company Number: NO-PFIZER INC-2010046779

PATIENT
  Age: 63 Year
  Sex: Male

DRUGS (4)
  1. VIAGRA [Suspect]
     Indication: ERECTILE DYSFUNCTION
     Dosage: 50-100 MG
     Dates: start: 20060101
  2. APROVEL [Suspect]
     Indication: HYPERTENSION
     Dosage: 300 MG, UNK
     Dates: start: 20060101
  3. ALBYL-E [Concomitant]
     Dosage: UNK
  4. ZANIDIP [Concomitant]
     Dosage: 10 MG, UNK

REACTIONS (2)
  - DRUG INEFFECTIVE [None]
  - ERECTILE DYSFUNCTION [None]
